FAERS Safety Report 18846342 (Version 1)
Quarter: 2021Q1

REPORT INFORMATION
  Report Type: Spontaneous
  Country: IT (occurrence: IT)
  Receive Date: 20210203
  Receipt Date: 20210203
  Transmission Date: 20210419
  Serious: No
  Sender: FDA-Public Use
  Company Number: IT-EXELIXIS-CABO-20029959

PATIENT
  Age: 85 Year
  Sex: Male

DRUGS (17)
  1. ABSTRAL [Concomitant]
     Active Substance: FENTANYL CITRATE
     Dosage: UNK
  2. CALCIODIE [Concomitant]
     Dosage: UNK
  3. PLASIL [Concomitant]
     Active Substance: METOCLOPRAMIDE HYDROCHLORIDE
     Dosage: UNK
  4. PANTOPRAZOLE [Concomitant]
     Active Substance: PANTOPRAZOLE
     Dosage: 20 MG
  5. PLAUNAZIDE [Concomitant]
     Active Substance: HYDROCHLOROTHIAZIDE\OLMESARTAN MEDOXOMIL
     Dosage: 40 MG/12.5 MG
     Route: 048
  6. CITALOPRAM [Concomitant]
     Active Substance: CITALOPRAM HYDROBROMIDE
     Dosage: 7 [DRP] (DROP (1/12 MILLILITRE))
     Route: 048
  7. FINASTERIDE. [Concomitant]
     Active Substance: FINASTERIDE
     Dosage: UNK
     Route: 048
  8. KANRENOL [Concomitant]
     Active Substance: CANRENOATE POTASSIUM
     Dosage: 50 MG
     Route: 048
  9. LENTO?KALIUM [Concomitant]
     Active Substance: POTASSIUM CHLORIDE
     Dosage: 1800 MG
     Route: 048
  10. TOUJEO [Concomitant]
     Active Substance: INSULIN GLARGINE
     Dosage: 7 [IU]
  11. TAMSULOSIN [Concomitant]
     Active Substance: TAMSULOSIN
     Dosage: 0.4 MG
     Route: 048
  12. PREGABALIN. [Concomitant]
     Active Substance: PREGABALIN
     Dosage: UNK
  13. IMODIUM [Concomitant]
     Active Substance: LOPERAMIDE HYDROCHLORIDE
     Dosage: UNK
  14. CABOMETYX [Suspect]
     Active Substance: CABOZANTINIB S-MALATE
     Indication: HEPATOCELLULAR CARCINOMA
     Dosage: 40 MG, QD
     Route: 048
     Dates: start: 20190731, end: 20200317
  15. DIBASE [Concomitant]
     Active Substance: CHOLECALCIFEROL
     Dosage: 25.000 U.I./2,5 ML
     Route: 048
  16. TARGIN [Concomitant]
     Active Substance: NALOXONE HYDROCHLORIDE\OXYCODONE HYDROCHLORIDE
     Dosage: 30 MG
     Route: 048
  17. NORVASC [Concomitant]
     Active Substance: AMLODIPINE BESYLATE
     Dosage: 10 MG
     Route: 048

REACTIONS (4)
  - Skin lesion [Unknown]
  - Erythema [Unknown]
  - Skin exfoliation [Unknown]
  - Ulcer [Unknown]

NARRATIVE: CASE EVENT DATE: 20200327
